FAERS Safety Report 9753743 (Version 1)
Quarter: 2013Q4

REPORT INFORMATION
  Report Type: Spontaneous
  Country: US (occurrence: US)
  Receive Date: 20131213
  Receipt Date: 20131213
  Transmission Date: 20140711
  Serious: No
  Sender: FDA-Public Use
  Company Number: US-GILEAD-2010-0026629

PATIENT
  Sex: Female
  Weight: 93 kg

DRUGS (9)
  1. LETAIRIS [Suspect]
     Indication: PULMONARY ARTERIAL HYPERTENSION
     Route: 048
  2. LASIX [Concomitant]
  3. LIPITOR [Concomitant]
  4. DILAUDID [Concomitant]
  5. PROZAC [Concomitant]
  6. RESTORIL [Concomitant]
  7. POT CHLORIDE [Concomitant]
  8. ACIPHEX [Concomitant]
  9. XANAX [Concomitant]

REACTIONS (2)
  - Increased appetite [Unknown]
  - Weight increased [Unknown]
